FAERS Safety Report 20730919 (Version 2)
Quarter: 2022Q4

REPORT INFORMATION
  Report Type: Spontaneous
  Country: NL (occurrence: NL)
  Receive Date: 20220420
  Receipt Date: 20221104
  Transmission Date: 20230113
  Serious: Yes (Disabling)
  Sender: FDA-Public Use
  Company Number: NL-Accord-256972

PATIENT
  Age: 16 Year
  Sex: Male

DRUGS (1)
  1. OXYBUTYNIN [Suspect]
     Active Substance: OXYBUTYNIN
     Indication: Hyperhidrosis
     Dosage: UNK (STRENGTH: 5MG, INCREASED TO 3 X 5 MG)
     Route: 065
     Dates: start: 201909, end: 20211116

REACTIONS (15)
  - Suicidal ideation [Recovering/Resolving]
  - Depressed mood [Recovering/Resolving]
  - Fluid retention [Recovering/Resolving]
  - Restlessness [Recovering/Resolving]
  - Erythema [Recovering/Resolving]
  - Irritability [Recovering/Resolving]
  - Temperature intolerance [Recovering/Resolving]
  - Insomnia [Recovering/Resolving]
  - Dyspepsia [Recovering/Resolving]
  - Fatigue [Recovering/Resolving]
  - Dry mouth [Recovering/Resolving]
  - Anxiety [Recovering/Resolving]
  - Skin reaction [Recovering/Resolving]
  - Confusional state [Recovering/Resolving]
  - Off label use [Unknown]
